FAERS Safety Report 16292082 (Version 1)
Quarter: 2019Q2

REPORT INFORMATION
  Report Type: Report from Study
  Country: US (occurrence: US)
  Receive Date: 20190509
  Receipt Date: 20190509
  Transmission Date: 20190711
  Serious: Yes (Hospitalization)
  Sender: FDA-Public Use
  Company Number: US-ALKERMES INC.-ALK-2018-002782

PATIENT
  Age: 34 Year
  Sex: Male
  Weight: 97.5 kg

DRUGS (1)
  1. VIVITROL [Suspect]
     Active Substance: NALTREXONE
     Indication: DRUG DEPENDENCE
     Dosage: 380 MG, QMO
     Route: 030
     Dates: start: 20171217

REACTIONS (7)
  - Nerve compression [Unknown]
  - Chest pain [Recovered/Resolved]
  - Gait inability [Recovered/Resolved]
  - Hypoaesthesia [Recovered/Resolved]
  - Drug abuse [Not Recovered/Not Resolved]
  - Abdominal pain [Recovered/Resolved]
  - Alcohol use [Not Recovered/Not Resolved]

NARRATIVE: CASE EVENT DATE: 20180127
